FAERS Safety Report 5197299-3 (Version None)
Quarter: 2007Q1

REPORT INFORMATION
  Report Type: 
  Country: None (occurrence: None)
  Receive Date: 20070103
  Receipt Date: 20061228
  Transmission Date: 20070707
  Serious: Yes (Life-Threatening, Hospitalization)
  Sender: FDA-Public Use
  Company Number: PHBS2006JP18346

PATIENT
  Age: 67 Year
  Sex: Female
  Weight: 55 kg

DRUGS (8)
  1. TEGRETOL [Suspect]
     Indication: BIPOLAR I DISORDER
     Dosage: 300 MG/DAY
     Route: 048
     Dates: start: 20060208, end: 20060315
  2. LIMAS [Concomitant]
     Dosage: 400 MG/DAY
     Route: 048
  3. SOMELIN [Concomitant]
     Dosage: UNK, UNK
     Route: 048
  4. GOODMIN [Concomitant]
     Dosage: 0.25 MG/DAY
     Route: 048
  5. LEVOTOMIN [Concomitant]
     Dosage: 100 MG/DAY
     Route: 048
  6. TOLEDOMIN [Concomitant]
     Dosage: 50 MG/DAY
     Route: 048
  7. RAVONA [Concomitant]
     Dosage: 50 MG/DAY
     Route: 048
  8. DORAL [Concomitant]
     Dosage: 20 MG/DAY
     Route: 048

REACTIONS (24)
  - ALANINE AMINOTRANSFERASE INCREASED [None]
  - BLOOD CREATINE PHOSPHOKINASE INCREASED [None]
  - BLOOD CREATININE INCREASED [None]
  - BLOOD LACTATE DEHYDROGENASE INCREASED [None]
  - BLOOD POTASSIUM DECREASED [None]
  - BLOOD PRESSURE DECREASED [None]
  - BLOOD SODIUM DECREASED [None]
  - C-REACTIVE PROTEIN INCREASED [None]
  - CYTOMEGALOVIRUS ANTIGEN POSITIVE [None]
  - DECUBITUS ULCER [None]
  - DEPRESSED LEVEL OF CONSCIOUSNESS [None]
  - DRUG HYPERSENSITIVITY [None]
  - EOSINOPHIL COUNT INCREASED [None]
  - HAEMATOCRIT DECREASED [None]
  - HAEMOGLOBIN DECREASED [None]
  - LYMPHOCYTE COUNT DECREASED [None]
  - LYMPHOCYTE STIMULATION TEST POSITIVE [None]
  - OXYGEN SATURATION DECREASED [None]
  - PLATELET COUNT DECREASED [None]
  - RASH [None]
  - RED BLOOD CELL COUNT DECREASED [None]
  - RENAL FAILURE ACUTE [None]
  - SHOCK [None]
  - WHITE BLOOD CELL COUNT INCREASED [None]
